FAERS Safety Report 9552716 (Version 1)
Quarter: 2013Q3

REPORT INFORMATION
  Report Type: Spontaneous
  Country: US (occurrence: US)
  Receive Date: 20130925
  Receipt Date: 20130925
  Transmission Date: 20140515
  Serious: No
  Sender: FDA-Public Use
  Company Number: US-PURDUE-USA-2012-0093034

PATIENT
  Age: 49 Year
  Sex: Female

DRUGS (5)
  1. MORPHINE SULFATE (SIMILAR TO NDA 19-516) [Suspect]
     Indication: FIBROMYALGIA
     Dosage: 30 MG, Q12H
     Route: 048
     Dates: start: 20120831, end: 20120905
  2. MORPHINE SULFATE (SIMILAR TO NDA 19-516) [Suspect]
     Indication: INTERVERTEBRAL DISC PROTRUSION
  3. BENZODIAZEPINE RELATED DRUGS [Concomitant]
     Indication: ANXIETY
     Dosage: UNKNOWN
  4. LIDODERM [Concomitant]
     Indication: BACK PAIN
     Dosage: UNKNOWN , PRN
  5. REQUIP [Concomitant]
     Indication: RESTLESS LEGS SYNDROME
     Dosage: UNKNOWN

REACTIONS (2)
  - Sedation [Recovered/Resolved]
  - Feeling abnormal [Recovered/Resolved]
